FAERS Safety Report 22017056 (Version 1)
Quarter: 2023Q1

REPORT INFORMATION
  Report Type: Spontaneous
  Country: US (occurrence: US)
  Receive Date: 20230221
  Receipt Date: 20230221
  Transmission Date: 20230417
  Serious: Yes (Hospitalization)
  Sender: FDA-Public Use
  Company Number: US-MYLANLABS-2023M1018855

PATIENT
  Age: 53 Year
  Sex: Male

DRUGS (5)
  1. LEUCOVORIN [Suspect]
     Active Substance: LEUCOVORIN
     Indication: Colorectal cancer
     Dosage: UNK, AS A PART OF FOLFOX AND FOLFIRI REGIMEN
     Route: 065
  2. FLUOROURACIL [Suspect]
     Active Substance: FLUOROURACIL
     Indication: Colorectal cancer
     Dosage: UNK, AS A PART OF FOLFOX AND FOLFIRI REGIMEN
     Route: 065
  3. OXALIPLATIN [Suspect]
     Active Substance: OXALIPLATIN
     Indication: Colorectal cancer
     Dosage: UNK, AS A PART OF FOLFOX REGIMEN
     Route: 065
  4. IRINOTECAN [Suspect]
     Active Substance: IRINOTECAN
     Indication: Colorectal cancer
     Dosage: UNK, AS A PART OF FOLFIRI REGIMEN
     Route: 065
  5. MITOMYCIN C [Suspect]
     Active Substance: MITOMYCIN
     Indication: Colorectal cancer
     Dosage: 30 MILLIGRAM
     Route: 033

REACTIONS (2)
  - Drug ineffective [Unknown]
  - Disease progression [Unknown]
